FAERS Safety Report 14581270 (Version 3)
Quarter: 2018Q2

REPORT INFORMATION
  Report Type: Report from Study
  Country: DE (occurrence: DE)
  Receive Date: 20180228
  Receipt Date: 20180414
  Transmission Date: 20180711
  Serious: No
  Sender: FDA-Public Use
  Company Number: DE-ROCHE-2079830

PATIENT
  Age: 50 Year
  Sex: Male
  Weight: 74 kg

DRUGS (22)
  1. RILPIVIRINE [Suspect]
     Active Substance: RILPIVIRINE
     Indication: HIV INFECTION
     Dosage: 1 DF, QD, EMTRICITABINE/RILPIVIRINE/TENOFOVIR DF
     Route: 065
     Dates: start: 20131118
  2. RILPIVIRINE [Suspect]
     Active Substance: RILPIVIRINE
     Route: 048
     Dates: start: 20160613
  3. CEFUROXIM [Concomitant]
     Active Substance: CEFUROXIME
     Route: 065
     Dates: start: 20170313
  4. TENOFOVIR DISOPROXIL FUMARATE. [Suspect]
     Active Substance: TENOFOVIR DISOPROXIL FUMARATE
     Indication: HIV INFECTION
     Route: 065
     Dates: start: 20131118
  5. PEG-INTERFERON ALFA 2A [Suspect]
     Active Substance: PEGINTERFERON ALFA-2A
     Indication: CHRONIC HEPATITIS C
     Route: 058
     Dates: start: 20131118, end: 20140109
  6. VALTREX [Concomitant]
     Active Substance: VALACYCLOVIR HYDROCHLORIDE
     Dosage: UNK
     Route: 065
     Dates: start: 20160613
  7. CEFTRIAXONE. [Concomitant]
     Active Substance: CEFTRIAXONE
     Route: 065
     Dates: start: 20150812, end: 20150815
  8. RIBAVIRIN. [Suspect]
     Active Substance: RIBAVIRIN
     Indication: CHRONIC HEPATITIS C
     Dosage: 1000 MG, QD
     Route: 048
     Dates: start: 20131118, end: 20140109
  9. BETAISODONA [Concomitant]
     Active Substance: POVIDONE-IODINE
     Route: 065
     Dates: start: 20150812, end: 20150915
  10. EMTRICITABINE [Suspect]
     Active Substance: EMTRICITABINE
     Indication: HIV INFECTION
     Route: 065
     Dates: start: 20131118
  11. AFLURIA [Concomitant]
     Active Substance: INFLUENZA VIRUS VACCINE TRIVALENT TYPE A+B AFLURIA
     Dosage: 0.5 ML, UNK
     Route: 065
  12. ROCEPHIN [Concomitant]
     Active Substance: CEFTRIAXONE SODIUM
     Dosage: UNK
     Route: 065
     Dates: start: 20170313
  13. CEPHALEXIN. [Concomitant]
     Active Substance: CEPHALEXIN
     Dosage: 1000 MG, TID,
     Route: 065
     Dates: start: 20150812, end: 20150815
  14. TRAMAL [Concomitant]
     Active Substance: TRAMADOL
     Route: 065
     Dates: start: 20160613
  15. VAXIGRIP [Concomitant]
     Active Substance: INFLUENZA VIRUS VACCINE
     Route: 065
     Dates: start: 20151021, end: 20151021
  16. VIOFORMO [Concomitant]
     Route: 065
     Dates: start: 20160613
  17. IBUPROFEN. [Concomitant]
     Active Substance: IBUPROFEN
     Route: 065
     Dates: start: 20160613
  18. BISOPROLOL [Concomitant]
     Active Substance: BISOPROLOL
     Dosage: UNK
     Route: 065
     Dates: start: 20061101
  19. AZITHROMYCIN ANHYDROUS. [Concomitant]
     Active Substance: AZITHROMYCIN ANHYDROUS
     Dosage: 500 MG, QD
     Route: 065
     Dates: start: 20150630, end: 20150715
  20. INDOMET [Concomitant]
     Active Substance: INDOMETHACIN
     Route: 065
     Dates: start: 20140820
  21. FUCICORT [Concomitant]
     Active Substance: BETAMETHASONE VALERATE\FUSIDIC ACID
     Route: 065
     Dates: start: 20140723
  22. AZITHROMYCIN ANHYDROUS. [Concomitant]
     Active Substance: AZITHROMYCIN ANHYDROUS
     Route: 065
     Dates: start: 20160613

REACTIONS (2)
  - Skin lesion [Recovered/Resolved]
  - Facial paresis [Recovered/Resolved]

NARRATIVE: CASE EVENT DATE: 20170306
